FAERS Safety Report 9155379 (Version 2)
Quarter: 2013Q2

REPORT INFORMATION
  Report Type: Spontaneous
  Country: US (occurrence: US)
  Receive Date: 20130311
  Receipt Date: 20130420
  Transmission Date: 20140414
  Serious: Yes (Hospitalization)
  Sender: FDA-Public Use
  Company Number: US-B.I. PHARMACEUTICALS,INC./RIDGEFIELD-2013-BI-05888BP

PATIENT
  Age: 64 Year
  Sex: Female
  Weight: 90.72 kg

DRUGS (9)
  1. PRADAXA [Suspect]
     Indication: ATRIAL FIBRILLATION
     Dosage: 150 MG
     Dates: end: 20120814
  2. LIPITOR [Concomitant]
     Dosage: 10 MG
     Route: 048
  3. GABAPENTIN [Concomitant]
     Dosage: 300 MG
     Route: 048
  4. FENOFIBRATE [Concomitant]
     Dosage: 160 MG
     Route: 048
  5. LISINOPRIL [Concomitant]
     Dosage: 10 MG
     Route: 048
  6. GLIMEPIRIDE [Concomitant]
     Dosage: 4 MG
     Route: 048
  7. HYDROCHLOROTHIAZIDE [Concomitant]
     Dosage: 12.5 MG
     Route: 048
  8. METOPROLOL XL [Concomitant]
     Dosage: 50 MG
  9. MULTAQ [Concomitant]
     Dosage: 800 MG

REACTIONS (1)
  - Upper gastrointestinal haemorrhage [Recovered/Resolved]
